FAERS Safety Report 6119898-4 (Version None)
Quarter: 2009Q1

REPORT INFORMATION
  Report Type: 
  Country: None (occurrence: None)
  Receive Date: 20090311
  Receipt Date: 20090224
  Transmission Date: 20090719
  Serious: Yes (Hospitalization)
  Sender: FDA-Public Use
  Company Number: 8043705

PATIENT
  Age: 80 Year
  Sex: Female

DRUGS (9)
  1. LEVETIRACETAM [Suspect]
     Dosage: 1000 MG 2/D
     Dates: start: 20020101
  2. LEVETIRACETAM [Suspect]
     Dosage: 250 MG 2/D
  3. LEVETIRACETAM [Suspect]
     Dosage: 250 MG 2/D
  4. VERAPAMIL [Concomitant]
  5. PROPRANOLOL [Concomitant]
  6. METFORMIN HCL [Concomitant]
  7. OXAZEPAM [Concomitant]
  8. ESCITALOPRAM [Concomitant]
  9. LEVODOPA/BENSERAZIDE [Concomitant]

REACTIONS (5)
  - ANTICONVULSANT DRUG LEVEL ABOVE THERAPEUTIC [None]
  - DIAPHRAGMATIC DISORDER [None]
  - DRUG TOXICITY [None]
  - MYOCLONUS [None]
  - VASCULAR ENCEPHALOPATHY [None]
